FAERS Safety Report 10214452 (Version 1)
Quarter: 2014Q2

REPORT INFORMATION
  Report Type: Spontaneous
  Country: US (occurrence: None)
  Receive Date: 20140602
  Receipt Date: 20140602
  Transmission Date: 20141212
  Serious: Yes (Other)
  Sender: FDA-Public Use
  Company Number: None

PATIENT
  Age: 78 Year
  Sex: Male
  Weight: 89.36 kg

DRUGS (3)
  1. DEMEROL [Suspect]
     Indication: COLONOSCOPY
     Dosage: PRIOR TO PROCEDURE
     Route: 042
     Dates: start: 20140516
  2. VERSED [Concomitant]
  3. DEMEROL [Concomitant]

REACTIONS (2)
  - Drug hypersensitivity [None]
  - Somnolence [None]
